FAERS Safety Report 6158894-8 (Version None)
Quarter: 2009Q2

REPORT INFORMATION
  Report Type: 
  Country: None (occurrence: None)
  Receive Date: 20090417
  Receipt Date: 20090406
  Transmission Date: 20091009
  Serious: Yes (Hospitalization)
  Sender: FDA-Public Use
  Company Number: JP-ELI_LILLY_AND_COMPANY-JP200904003254

PATIENT
  Sex: Male
  Weight: 56 kg

DRUGS (5)
  1. DULOXETINE HYDROCHLORIDE [Suspect]
     Indication: DIABETIC NEUROPATHY
     Dosage: 60 MG, DAILY (1/D)
     Route: 048
     Dates: start: 20090210
  2. LANTUS [Concomitant]
     Indication: DIABETES MELLITUS
     Dosage: 14 IU, DAILY (1/D)
     Route: 065
     Dates: start: 20081101
  3. NOVORAPID [Concomitant]
     Indication: DIABETES MELLITUS
     Dosage: 16 IU, DAILY (1/D)
     Route: 065
     Dates: start: 20081101
  4. LIPITOR [Concomitant]
     Indication: HYPERCHOLESTEROLAEMIA
     Dosage: 10 MG, DAILY (1/D)
     Route: 048
     Dates: start: 20090105
  5. CYANOCOBALAMIN [Concomitant]
     Indication: DIABETIC NEUROPATHY
     Dosage: 1500 UG, DAILY (1/D)
     Route: 048
     Dates: start: 20080510

REACTIONS (1)
  - GENERALISED OEDEMA [None]
